FAERS Safety Report 11928602 (Version 3)
Quarter: 2016Q2

REPORT INFORMATION
  Report Type: Spontaneous
  Country: JP (occurrence: JP)
  Receive Date: 20160119
  Receipt Date: 20160401
  Transmission Date: 20160815
  Serious: Yes (Life-Threatening, Hospitalization, Other)
  Sender: FDA-Public Use
  Company Number: JP-009507513-1601JPN006462

PATIENT
  Age: 68 Year
  Sex: Male
  Weight: 69.1 kg

DRUGS (13)
  1. AMLODIN OD [Concomitant]
     Active Substance: AMLODIPINE BESYLATE
     Dosage: 5 MG, QD
     Route: 048
  2. REBETOL [Suspect]
     Active Substance: RIBAVIRIN
     Dosage: DAILY DOSE UNKNOWN, 200MG+400MG
     Route: 048
     Dates: start: 20151215, end: 20151227
  3. RANITIDINE HYDROCHLORIDE. [Suspect]
     Active Substance: RANITIDINE HYDROCHLORIDE
     Dosage: FORMULATION: POR, 75MG, BID
     Route: 048
     Dates: end: 20160107
  4. ALLOPURINOL. [Concomitant]
     Active Substance: ALLOPURINOL
     Dosage: FORMULATION: POR, 100MG, BID
     Route: 048
  5. REBETOL [Suspect]
     Active Substance: RIBAVIRIN
     Indication: HEPATITIS C
     Dosage: 400 MG, BID
     Route: 048
     Dates: start: 20151201, end: 20151214
  6. AZILVA [Suspect]
     Active Substance: AZILSARTAN KAMEDOXOMIL
     Dosage: DAILY DOSE UNKNOWN
     Route: 048
     Dates: start: 20160310
  7. ICOSAPENT ETHYL [Concomitant]
     Active Substance: ICOSAPENT ETHYL
     Dosage: FORMULATION: POR, 900MG, BID
     Route: 048
  8. BISOPROLOL FUMARATE. [Concomitant]
     Active Substance: BISOPROLOL FUMARATE
     Dosage: FORMULATION: POR ,2.5 MG, QD
     Route: 048
  9. REBETOL [Suspect]
     Active Substance: RIBAVIRIN
     Dosage: 200 MG,  ONCE DAILY
     Route: 048
     Dates: start: 20151228, end: 20160103
  10. SOVALDI [Suspect]
     Active Substance: SOFOSBUVIR
     Indication: HEPATITIS C
     Dosage: FORMULATION: POR, 400 MG,  ONCE DAILY
     Route: 048
     Dates: start: 20151201, end: 20160104
  11. AZILVA [Suspect]
     Active Substance: AZILSARTAN KAMEDOXOMIL
     Dosage: FORMULATION: POR, 20MG, BID
     Route: 048
     Dates: end: 20160114
  12. MECOBALAMIN [Suspect]
     Active Substance: METHYLCOBALAMIN
     Dosage: FORMULATION: POR, 500MICROGRAM, TID
     Route: 048
     Dates: end: 20160105
  13. CELECOX [Suspect]
     Active Substance: CELECOXIB
     Dosage: FORMULATION: POR, 100MG, BID
     Route: 048
     Dates: end: 20160107

REACTIONS (3)
  - Blood pressure decreased [Unknown]
  - Bone marrow failure [Unknown]
  - Aplastic anaemia [Unknown]

NARRATIVE: CASE EVENT DATE: 20151214
